FAERS Safety Report 6535630-4 (Version None)
Quarter: 2010Q1

REPORT INFORMATION
  Report Type: 
  Country: None (occurrence: None)
  Receive Date: 20100113
  Receipt Date: 20100106
  Transmission Date: 20100710
  Serious: Yes (Hospitalization, Other)
  Sender: FDA-Public Use
  Company Number: PHHY2009CA47108

PATIENT
  Sex: Female

DRUGS (9)
  1. EXJADE [Suspect]
     Indication: MYELODYSPLASTIC SYNDROME
     Dosage: 1250 MG, UNK
     Route: 048
     Dates: start: 20091028, end: 20091227
  2. EXJADE [Suspect]
     Indication: IRON OVERLOAD
     Dosage: 1250 MG, QD
     Route: 048
     Dates: start: 20091021
  3. BISOPROLOL FUMARATE [Concomitant]
     Indication: BLOOD PRESSURE
     Dosage: 5 MG 1/4 TABLET QD
     Route: 048
  4. ATACAND [Concomitant]
     Indication: BLOOD PRESSURE
     Dosage: 4 MG 1 AND 1/2 TABLET QD
     Route: 048
  5. WARFARIN SODIUM [Concomitant]
     Dosage: 3 MG 1 1/2 TABLET QD ON MONDAY, WEDNESDAY AND FRIDAY AND 1 TABLET QD REST OF DAYS
     Route: 048
  6. THALOMID [Concomitant]
  7. COUMADIN [Concomitant]
     Dosage: 3 MG 2 TABLETS QD AT NITE TIME
     Route: 048
  8. K-DUR [Concomitant]
     Dosage: 1 DF, QD
     Route: 048
  9. APO-LANSOPRAZOLE [Concomitant]
     Dosage: 30 MG, QD
     Route: 048

REACTIONS (12)
  - ABDOMINAL DISTENSION [None]
  - ABDOMINAL PAIN UPPER [None]
  - CARDIAC DISORDER [None]
  - DIZZINESS [None]
  - HAEMATOCHEZIA [None]
  - HAEMOGLOBIN DECREASED [None]
  - HYPOTENSION [None]
  - INTERNATIONAL NORMALISED RATIO INCREASED [None]
  - NAUSEA [None]
  - OCULAR HYPERAEMIA [None]
  - SENSATION OF HEAVINESS [None]
  - VOMITING [None]
